FAERS Safety Report 5468050-4 (Version None)
Quarter: 2007Q3

REPORT INFORMATION
  Report Type: 
  Country: None (occurrence: None)
  Receive Date: 20070917
  Receipt Date: 20040507
  Transmission Date: 20080115
  Serious: Yes (Other)
  Sender: FDA-Public Use
  Company Number: 200409024

PATIENT
  Age: 59 Year
  Sex: Male

DRUGS (7)
  1. ALBUMINAR [Suspect]
     Indication: CORONARY ARTERY BYPASS
     Dosage: 250 ML DAILY IV
     Route: 042
     Dates: start: 20040408
  2. DIAZEPAM [Concomitant]
  3. ROXATIDINE ACETATE HCL [Concomitant]
  4. PROPOFOL [Concomitant]
  5. FENTANYL [Concomitant]
  6. KETAMINE HCL [Concomitant]
  7. VECURONIUM BROMIDE [Concomitant]

REACTIONS (8)
  - ANAPHYLACTIC SHOCK [None]
  - CAPILLARY PERMEABILITY INCREASED [None]
  - FLUSHING [None]
  - HAEMORRHAGE [None]
  - HYPOVOLAEMIA [None]
  - OEDEMA PERIPHERAL [None]
  - OXYGEN SATURATION ABNORMAL [None]
  - PULMONARY CONGESTION [None]
